FAERS Safety Report 11272877 (Version 1)
Quarter: 2015Q3

REPORT INFORMATION
  Report Type: Spontaneous
  Country: US (occurrence: US)
  Receive Date: 20150715
  Receipt Date: 20150715
  Transmission Date: 20151125
  Serious: No
  Sender: FDA-Public Use
  Company Number: US-PFIZER INC-2015232431

PATIENT
  Sex: Male

DRUGS (2)
  1. GABAPENTIN. [Concomitant]
     Active Substance: GABAPENTIN
     Dosage: UNK
  2. LYRICA [Suspect]
     Active Substance: PREGABALIN
     Dosage: 50MG, ONE IN THE MORNING AND 2 AT BEDTIME

REACTIONS (3)
  - Initial insomnia [Unknown]
  - Neuropathy peripheral [Unknown]
  - Glucose tolerance impaired [Unknown]
